FAERS Safety Report 4314329-9 (Version None)
Quarter: 2004Q1

REPORT INFORMATION
  Report Type: 
  Country: None (occurrence: None)
  Receive Date: 20040309
  Receipt Date: 20040224
  Transmission Date: 20041129
  Serious: Yes (Death, Other)
  Sender: FDA-Public Use
  Company Number: PHEH2004US02370

PATIENT
  Age: 86 Year
  Sex: Male

DRUGS (2)
  1. EXELON [Suspect]
     Indication: DEMENTIA ALZHEIMER'S TYPE
     Dosage: 3 MG, BID
     Route: 048
     Dates: start: 20031014
  2. ALBUTEROL [Concomitant]

REACTIONS (2)
  - INTESTINAL HAEMORRHAGE [None]
  - RECTAL HAEMORRHAGE [None]
